FAERS Safety Report 8288467-2 (Version None)
Quarter: 2012Q2

REPORT INFORMATION
  Report Type: 
  Country: None (occurrence: None)
  Receive Date: 20120416
  Receipt Date: 20120402
  Transmission Date: 20120825
  Serious: Yes (Hospitalization, Other)
  Sender: FDA-Public Use
  Company Number: US-BAXTER-2012BH006921

PATIENT
  Sex: Female

DRUGS (2)
  1. PREDNISOLONE [Concomitant]
  2. DIANEAL [Suspect]
     Indication: PERITONEAL DIALYSIS
     Route: 033

REACTIONS (2)
  - PAIN IN EXTREMITY [None]
  - PERITONITIS BACTERIAL [None]
